FAERS Safety Report 18847425 (Version 1)
Quarter: 2021Q1

REPORT INFORMATION
  Report Type: Report from Study
  Country: US (occurrence: US)
  Receive Date: 20210203
  Receipt Date: 20210203
  Transmission Date: 20210419
  Serious: No
  Sender: FDA-Public Use
  Company Number: US-EXELIXIS-CABO-20033976

PATIENT
  Age: 57 Year
  Sex: Male

DRUGS (1)
  1. CABOMETYX [Suspect]
     Active Substance: CABOZANTINIB S-MALATE
     Indication: RENAL CELL CARCINOMA
     Dosage: 60 MG, QD
     Dates: start: 20201006, end: 20201110

REACTIONS (12)
  - Constipation [Unknown]
  - Dehydration [Unknown]
  - Pain in extremity [Unknown]
  - Skin erosion [Unknown]
  - Dry mouth [Unknown]
  - Stomatitis [Unknown]
  - Diarrhoea [Recovered/Resolved]
  - Tongue exfoliation [Unknown]
  - Decreased appetite [Unknown]
  - Rectal discharge [Unknown]
  - Skin ulcer [Unknown]
  - Fatigue [Not Recovered/Not Resolved]

NARRATIVE: CASE EVENT DATE: 202010
